FAERS Safety Report 9001476 (Version 1)
Quarter: 2013Q1

REPORT INFORMATION
  Report Type: Spontaneous
  Country: FR (occurrence: FR)
  Receive Date: 20130107
  Receipt Date: 20130107
  Transmission Date: 20140127
  Serious: Yes (Other)
  Sender: FDA-Public Use
  Company Number: PHHY2013FR001167

PATIENT
  Age: 63 Year
  Sex: Female

DRUGS (3)
  1. DOCETAXEL [Suspect]
     Indication: NON-SMALL CELL LUNG CANCER METASTATIC
     Dosage: 75 UNK, UNK
  2. CISPLATIN [Concomitant]
     Indication: NON-SMALL CELL LUNG CANCER METASTATIC
  3. ERLOTINIB [Concomitant]
     Indication: NON-SMALL CELL LUNG CANCER METASTATIC

REACTIONS (4)
  - Photosensitivity reaction [Recovered/Resolved]
  - Rash erythematous [Recovered/Resolved]
  - Rash [Recovered/Resolved]
  - Sunburn [Recovered/Resolved]
